FAERS Safety Report 18319985 (Version 1)
Quarter: 2020Q3

REPORT INFORMATION
  Report Type: Spontaneous
  Country: DE (occurrence: DE)
  Receive Date: 20200929
  Receipt Date: 20200929
  Transmission Date: 20201103
  Serious: Yes (Hospitalization)
  Sender: FDA-Public Use
  Company Number: DE-JNJFOC-20200936846

PATIENT
  Sex: Female

DRUGS (1)
  1. REGAINE WOMAN 2% PR?008381 [Suspect]
     Active Substance: MINOXIDIL
     Indication: ALOPECIA
     Route: 065
     Dates: start: 20200805

REACTIONS (4)
  - Erythema [Recovering/Resolving]
  - Pruritus [Recovering/Resolving]
  - Swelling face [Recovering/Resolving]
  - Pain in extremity [Recovering/Resolving]

NARRATIVE: CASE EVENT DATE: 20200901
